FAERS Safety Report 19207658 (Version 11)
Quarter: 2022Q3

REPORT INFORMATION
  Report Type: Spontaneous
  Country: GB (occurrence: GB)
  Receive Date: 20210503
  Receipt Date: 20220907
  Transmission Date: 20221026
  Serious: Yes (Other)
  Sender: FDA-Public Use
  Company Number: GB-PFIZER INC-2021115951

PATIENT
  Age: 81 Year
  Sex: Female

DRUGS (1)
  1. LIPITOR [Suspect]
     Active Substance: ATORVASTATIN CALCIUM
     Dosage: UNK

REACTIONS (9)
  - Endometrial cancer [Recovered/Resolved]
  - Vaginal haemorrhage [Unknown]
  - Nasopharyngitis [Unknown]
  - Syncope [Unknown]
  - Pelvic fluid collection [Unknown]
  - Arteritis [Unknown]
  - Increased appetite [Unknown]
  - Head discomfort [Unknown]
  - Fall [Unknown]
